FAERS Safety Report 10396266 (Version 1)
Quarter: 2014Q3

REPORT INFORMATION
  Report Type: Spontaneous
  Country: GB (occurrence: GB)
  Receive Date: 20140820
  Receipt Date: 20140820
  Transmission Date: 20150326
  Serious: Yes (Other)
  Sender: FDA-Public Use
  Company Number: GB-WATSON-2014-17790

PATIENT
  Sex: Female

DRUGS (6)
  1. DAPSONE (UNKNOWN) [Suspect]
     Active Substance: DAPSONE
     Indication: HYPERSENSITIVITY VASCULITIS
  2. CYCLOSPORINE (UNKNOWN) [Suspect]
     Active Substance: CYCLOSPORINE
     Indication: CHRONIC SPONTANEOUS URTICARIA
  3. DAPSONE (UNKNOWN) [Suspect]
     Active Substance: DAPSONE
     Indication: CHRONIC SPONTANEOUS URTICARIA
     Dosage: UNK
     Route: 065
  4. CYCLOSPORINE (UNKNOWN) [Suspect]
     Active Substance: CYCLOSPORINE
     Indication: HYPERSENSITIVITY VASCULITIS
     Dosage: UNK
     Route: 065
  5. COLCHICINE (UNKNOWN) [Suspect]
     Active Substance: COLCHICINE
     Indication: HYPERSENSITIVITY VASCULITIS
     Dosage: UNK
     Route: 065
  6. COLCHICINE (UNKNOWN) [Suspect]
     Active Substance: COLCHICINE
     Indication: CHRONIC SPONTANEOUS URTICARIA

REACTIONS (8)
  - Discomfort [Unknown]
  - Rash [Unknown]
  - Sleep disorder [Unknown]
  - Angioedema [Unknown]
  - Drug ineffective [Unknown]
  - Fatigue [Unknown]
  - Pruritus [Unknown]
  - Chronic spontaneous urticaria [Unknown]
